FAERS Safety Report 17100413 (Version 1)
Quarter: 2019Q4

REPORT INFORMATION
  Report Type: Report from Study
  Country: US (occurrence: US)
  Receive Date: 20191202
  Receipt Date: 20191202
  Transmission Date: 20200122
  Serious: No
  Sender: FDA-Public Use
  Company Number: NVSC2019US055033

PATIENT
  Age: 68 Year
  Sex: Female

DRUGS (1)
  1. ENTRESTO [Suspect]
     Active Substance: SACUBITRIL\VALSARTAN
     Indication: CARDIAC FAILURE
     Dosage: 100 MG(49 MG SACUBITRIL/51 MG VALSARTAN), BID
     Route: 048
     Dates: start: 201911

REACTIONS (5)
  - Hypoacusis [Unknown]
  - Tinnitus [Unknown]
  - Influenza [Recovered/Resolved]
  - Sinusitis [Unknown]
  - Foot fracture [Unknown]

NARRATIVE: CASE EVENT DATE: 201911
